FAERS Safety Report 13372645 (Version 2)
Quarter: 2018Q2

REPORT INFORMATION
  Report Type: Report from Study
  Country: FR (occurrence: FR)
  Receive Date: 20170327
  Receipt Date: 20180423
  Transmission Date: 20180711
  Serious: Yes (Other)
  Sender: FDA-Public Use
  Company Number: FR-ACCORD-049397

PATIENT
  Sex: Female

DRUGS (3)
  1. METHOTREXATE. [Suspect]
     Active Substance: METHOTREXATE
     Indication: BREAST CANCER
     Dosage: 12 MG DAY 1 TO DAY 5 THEN DOSE WAS MAINTAINED AT 15 MG/WEEK
     Route: 037
  2. DEPO-MEDROL [Concomitant]
     Active Substance: METHYLPREDNISOLONE ACETATE
     Indication: BREAST CANCER
  3. FOLINIC ACID [Concomitant]
     Active Substance: LEUCOVORIN
     Indication: BREAST CANCER
     Dosage: 25 MG DAY 3 AND DAY 4
     Route: 048

REACTIONS (4)
  - Pyrexia [Unknown]
  - Pancytopenia [Unknown]
  - Off label use [Unknown]
  - Mucosal inflammation [Unknown]
